FAERS Safety Report 21456281 (Version 1)
Quarter: 2022Q4

REPORT INFORMATION
  Report Type: Spontaneous
  Country: US (occurrence: None)
  Receive Date: 20221014
  Receipt Date: 20221014
  Transmission Date: 20230112
  Serious: Yes (Death)
  Sender: FDA-Public Use
  Company Number: US-ROCHE-3199713

PATIENT
  Age: 87 Year
  Sex: Female
  Weight: 39.044 kg

DRUGS (7)
  1. ERIVEDGE [Suspect]
     Active Substance: VISMODEGIB
     Indication: Basal cell carcinoma
     Route: 048
     Dates: start: 20220503, end: 20221005
  2. VITAMIN C [Concomitant]
     Active Substance: ASCORBIC ACID
  3. CARVEDILOL [Concomitant]
     Active Substance: CARVEDILOL
  4. POTASSIUM CHLORIDE [Concomitant]
     Active Substance: POTASSIUM CHLORIDE
  5. ROSUVASTATIN [Concomitant]
     Active Substance: ROSUVASTATIN
  6. SENNA S [Concomitant]
     Active Substance: DOCUSATE SODIUM\SENNA LEAF
  7. ACETAMINOPHEN [Concomitant]
     Active Substance: ACETAMINOPHEN

REACTIONS (2)
  - COVID-19 [Fatal]
  - Pneumonia [Fatal]
